FAERS Safety Report 9237259 (Version 1)
Quarter: 2013Q2

REPORT INFORMATION
  Report Type: Spontaneous
  Country: US (occurrence: US)
  Receive Date: 20130417
  Receipt Date: 20130417
  Transmission Date: 20140414
  Serious: Yes (Life-Threatening)
  Sender: FDA-Public Use
  Company Number: US-BAYER-2013-048830

PATIENT
  Age: 86 Year
  Sex: Female

DRUGS (2)
  1. ALEVE CAPLET [Suspect]
  2. IBUPROFEN [Suspect]

REACTIONS (1)
  - Anaphylactic shock [None]
